FAERS Safety Report 17222787 (Version 7)
Quarter: 2023Q4

REPORT INFORMATION
  Report Type: Spontaneous
  Country: US (occurrence: None)
  Receive Date: 20200102
  Receipt Date: 20231222
  Transmission Date: 20240110
  Serious: Yes (Hospitalization, Other)
  Sender: FDA-Public Use
  Company Number: 2019SF88968

PATIENT
  Age: 15269 Day
  Sex: Male
  Weight: 244.9 kg

DRUGS (83)
  1. FARXIGA [Suspect]
     Active Substance: DAPAGLIFLOZIN PROPANEDIOL
     Indication: Type 2 diabetes mellitus
     Route: 048
     Dates: start: 20150619
  2. FARXIGA [Suspect]
     Active Substance: DAPAGLIFLOZIN PROPANEDIOL
     Indication: Weight decreased
     Route: 048
     Dates: start: 20150619
  3. FARXIGA [Suspect]
     Active Substance: DAPAGLIFLOZIN PROPANEDIOL
     Indication: Blood pressure decreased
     Route: 048
     Dates: start: 20150619
  4. FARXIGA [Suspect]
     Active Substance: DAPAGLIFLOZIN PROPANEDIOL
     Indication: Type 2 diabetes mellitus
     Route: 048
     Dates: start: 20170325, end: 20170508
  5. FARXIGA [Suspect]
     Active Substance: DAPAGLIFLOZIN PROPANEDIOL
     Indication: Weight decreased
     Route: 048
     Dates: start: 20170325, end: 20170508
  6. FARXIGA [Suspect]
     Active Substance: DAPAGLIFLOZIN PROPANEDIOL
     Indication: Blood pressure decreased
     Route: 048
     Dates: start: 20170325, end: 20170508
  7. FARXIGA [Suspect]
     Active Substance: DAPAGLIFLOZIN PROPANEDIOL
     Indication: Type 2 diabetes mellitus
     Route: 048
     Dates: start: 20160729
  8. FARXIGA [Suspect]
     Active Substance: DAPAGLIFLOZIN PROPANEDIOL
     Indication: Weight decreased
     Route: 048
     Dates: start: 20160729
  9. FARXIGA [Suspect]
     Active Substance: DAPAGLIFLOZIN PROPANEDIOL
     Indication: Blood pressure decreased
     Route: 048
     Dates: start: 20160729
  10. FARXIGA [Suspect]
     Active Substance: DAPAGLIFLOZIN PROPANEDIOL
     Indication: Type 2 diabetes mellitus
     Route: 048
     Dates: start: 20170301
  11. FARXIGA [Suspect]
     Active Substance: DAPAGLIFLOZIN PROPANEDIOL
     Indication: Weight decreased
     Route: 048
     Dates: start: 20170301
  12. FARXIGA [Suspect]
     Active Substance: DAPAGLIFLOZIN PROPANEDIOL
     Indication: Blood pressure decreased
     Route: 048
     Dates: start: 20170301
  13. FARXIGA [Suspect]
     Active Substance: DAPAGLIFLOZIN PROPANEDIOL
     Indication: Type 2 diabetes mellitus
     Route: 048
     Dates: end: 20170424
  14. FARXIGA [Suspect]
     Active Substance: DAPAGLIFLOZIN PROPANEDIOL
     Indication: Weight decreased
     Route: 048
     Dates: end: 20170424
  15. FARXIGA [Suspect]
     Active Substance: DAPAGLIFLOZIN PROPANEDIOL
     Indication: Blood pressure decreased
     Route: 048
     Dates: end: 20170424
  16. PROTONIX [Concomitant]
     Active Substance: PANTOPRAZOLE SODIUM
     Route: 048
     Dates: start: 20170925
  17. CLARITIN [Concomitant]
     Active Substance: LORATADINE
     Route: 048
     Dates: start: 20170629
  18. CIPRO [Concomitant]
     Active Substance: CIPROFLOXACIN HYDROCHLORIDE
     Route: 065
     Dates: start: 20170623
  19. CLINDAMYCIN HYDROCHLORIDE [Concomitant]
     Active Substance: CLINDAMYCIN HYDROCHLORIDE
     Route: 065
     Dates: start: 20170623
  20. ACETAMINOPHEN\HYDROCODONE BITARTRATE [Concomitant]
     Active Substance: ACETAMINOPHEN\HYDROCODONE BITARTRATE
     Route: 065
     Dates: start: 20170425
  21. ZOFRAN [Concomitant]
     Active Substance: ONDANSETRON HYDROCHLORIDE
     Route: 065
     Dates: start: 20171218
  22. AMMONIUM CHLORIDE\DEXTROMETHORPHAN\SODIUM CITRATE [Concomitant]
     Active Substance: AMMONIUM CHLORIDE\DEXTROMETHORPHAN\SODIUM CITRATE
     Route: 065
     Dates: start: 20171218
  23. REGLAN [Concomitant]
     Active Substance: METOCLOPRAMIDE HYDROCHLORIDE
     Route: 065
     Dates: start: 20171218
  24. AZELASTINE HYDROCHLORIDE [Concomitant]
     Active Substance: AZELASTINE HYDROCHLORIDE
     Route: 065
     Dates: start: 20171218
  25. ALPRAZOLAM [Concomitant]
     Active Substance: ALPRAZOLAM
     Route: 065
     Dates: start: 20171218
  26. PEPCID [Concomitant]
     Active Substance: FAMOTIDINE
     Route: 065
     Dates: start: 20171218
  27. LYRICA [Concomitant]
     Active Substance: PREGABALIN
     Route: 065
     Dates: start: 20171218
  28. GABAPENTIN [Concomitant]
     Active Substance: GABAPENTIN
     Route: 065
     Dates: start: 20171218
  29. DIFLUCAN [Concomitant]
     Active Substance: FLUCONAZOLE
     Route: 065
     Dates: start: 20171218
  30. LASIX [Concomitant]
     Active Substance: FUROSEMIDE
     Route: 065
     Dates: start: 20170629
  31. PERCOCET [Concomitant]
     Active Substance: ACETAMINOPHEN\OXYCODONE HYDROCHLORIDE
     Route: 065
     Dates: start: 20161122
  32. BACTRIM [Concomitant]
     Active Substance: SULFAMETHOXAZOLE\TRIMETHOPRIM
     Route: 065
     Dates: start: 20161122
  33. PHENTERMINE [Concomitant]
     Active Substance: PHENTERMINE
     Route: 065
     Dates: start: 20161003
  34. BYDUREON [Concomitant]
     Active Substance: EXENATIDE
     Route: 065
     Dates: start: 20161003
  35. METFORMIN HYDROCHLORIDE [Concomitant]
     Active Substance: METFORMIN HYDROCHLORIDE
     Route: 065
     Dates: start: 20161003
  36. QNASL [Concomitant]
     Active Substance: BECLOMETHASONE DIPROPIONATE
     Route: 065
     Dates: start: 20161003
  37. OMEPRAZOLE [Concomitant]
     Active Substance: OMEPRAZOLE
     Route: 065
     Dates: start: 20151209
  38. MELOXICAM [Concomitant]
     Active Substance: MELOXICAM
     Route: 065
     Dates: start: 20151209
  39. FLUTICASONE PROPIONATE [Concomitant]
     Active Substance: FLUTICASONE PROPIONATE
     Route: 065
     Dates: start: 20151209
  40. ZOSYN [Concomitant]
     Active Substance: PIPERACILLIN SODIUM\TAZOBACTAM SODIUM
     Route: 065
     Dates: start: 20170508
  41. VANCOMYCIN [Concomitant]
     Active Substance: VANCOMYCIN
     Route: 065
     Dates: start: 20170508
  42. HUMALOG [Concomitant]
     Active Substance: INSULIN LISPRO
     Route: 065
     Dates: start: 20170508
  43. FIORICET [Concomitant]
     Active Substance: ACETAMINOPHEN\BUTALBITAL\CAFFEINE
     Route: 065
     Dates: start: 20170508
  44. PRIMAXIN IV [Concomitant]
     Active Substance: CILASTATIN SODIUM\IMIPENEM
     Route: 065
     Dates: start: 20170508
  45. NAFCILLIN [Concomitant]
     Active Substance: NAFCILLIN SODIUM
     Route: 065
     Dates: end: 20170609
  46. LOVENOX [Concomitant]
     Active Substance: ENOXAPARIN SODIUM
     Route: 065
     Dates: start: 20170508
  47. DUONEB [Concomitant]
     Active Substance: ALBUTEROL SULFATE\IPRATROPIUM BROMIDE
     Route: 065
     Dates: start: 20170508
  48. ROBINUL [Concomitant]
     Active Substance: GLYCOPYRROLATE
     Route: 065
     Dates: start: 20170508
  49. VERSED [Concomitant]
     Active Substance: MIDAZOLAM HYDROCHLORIDE
     Route: 065
     Dates: start: 20170508
  50. LEVSIN [Concomitant]
     Active Substance: HYOSCYAMINE SULFATE
     Route: 065
     Dates: start: 20170514
  51. EMLA [Concomitant]
     Active Substance: LIDOCAINE\PRILOCAINE
     Route: 065
     Dates: start: 20170520
  52. DEXILANT [Concomitant]
     Active Substance: DEXLANSOPRAZOLE
     Dates: start: 20191202
  53. IMITREX [Concomitant]
     Active Substance: SUMATRIPTAN SUCCINATE
  54. ACETAMINOPHEN [Concomitant]
     Active Substance: ACETAMINOPHEN
  55. AMOXICILLIN [Concomitant]
     Active Substance: AMOXICILLIN
  56. MEPERIDINE [Concomitant]
     Active Substance: MEPERIDINE
  57. ROCEPHIN [Concomitant]
     Active Substance: CEFTRIAXONE SODIUM
  58. LEVAQUIN [Concomitant]
     Active Substance: LEVOFLOXACIN
  59. TOUJEO [Concomitant]
     Active Substance: INSULIN GLARGINE
  60. OXYCODONE [Concomitant]
     Active Substance: OXYCODONE
  61. CYCLOBENZAPRINE [Concomitant]
     Active Substance: CYCLOBENZAPRINE
  62. MUPIROCIN [Concomitant]
     Active Substance: MUPIROCIN
  63. AMARYL [Concomitant]
     Active Substance: GLIMEPIRIDE
     Dates: start: 20151211
  64. KETOROLAC [Concomitant]
     Active Substance: KETOROLAC TROMETHAMINE
  65. AUGMENTIN [Concomitant]
     Active Substance: AMOXICILLIN\CLAVULANATE POTASSIUM
  66. CHLORPHENIRAMINE [Concomitant]
     Active Substance: CHLORPHENIRAMINE
  67. AZITHROMYCIN [Concomitant]
     Active Substance: AZITHROMYCIN
  68. LISINOPRIL [Concomitant]
     Active Substance: LISINOPRIL
  69. SULFAMETHOXAZOLE [Concomitant]
     Active Substance: SULFAMETHOXAZOLE
  70. CLONAZEPAM [Concomitant]
     Active Substance: CLONAZEPAM
  71. LISINOPRIL AND HYDROCHLOROTHIAZIDE [Concomitant]
     Active Substance: HYDROCHLOROTHIAZIDE\LISINOPRIL
  72. ONDANSETRON [Concomitant]
     Active Substance: ONDANSETRON
  73. NARCAN [Concomitant]
     Active Substance: NALOXONE HYDROCHLORIDE
  74. ATORVASTATIN [Concomitant]
     Active Substance: ATORVASTATIN
  75. JARDIANCE [Concomitant]
     Active Substance: EMPAGLIFLOZIN
  76. VITAMINS [Concomitant]
     Active Substance: VITAMINS
  77. ALEVE [Concomitant]
     Active Substance: NAPROXEN SODIUM
  78. IBUPROFEN [Concomitant]
     Active Substance: IBUPROFEN
  79. TIZANIDINE [Concomitant]
     Active Substance: TIZANIDINE
  80. FISH OIL [Concomitant]
     Active Substance: FISH OIL
  81. AMITRIPTYLINE HYDROCHLORIDE [Concomitant]
     Active Substance: AMITRIPTYLINE HYDROCHLORIDE
  82. ADMELOG [Concomitant]
     Active Substance: INSULIN LISPRO
  83. BASAGLAR [Concomitant]
     Active Substance: INSULIN GLARGINE

REACTIONS (15)
  - Abscess [Unknown]
  - Acute kidney injury [Unknown]
  - Fournier^s gangrene [Unknown]
  - Perirectal abscess [Unknown]
  - Rectal abscess [Unknown]
  - Sepsis [Unknown]
  - Renal failure [Unknown]
  - Dyspnoea [Unknown]
  - Groin abscess [Unknown]
  - Abscess limb [Unknown]
  - Tooth abscess [Unknown]
  - Anal abscess [Unknown]
  - Cellulitis [Unknown]
  - Urinary tract infection [Unknown]
  - Genital abscess [Unknown]

NARRATIVE: CASE EVENT DATE: 20170508
